FAERS Safety Report 4885203-4 (Version None)
Quarter: 2005Q4

REPORT INFORMATION
  Report Type: 
  Country: None (occurrence: None)
  Receive Date: 20051214
  Receipt Date: 20050922
  Transmission Date: 20060501
  Serious: No
  Sender: FDA-Public Use
  Company Number: S05-USA-04380-01

PATIENT
  Age: 60 Year
  Sex: Male

DRUGS (2)
  1. CAMPRAL (ACAMPROSTATE CALCIUM) [Suspect]
     Indication: ALCOHOLISM
     Dosage: 666 MG TID PO
     Route: 048
     Dates: start: 20050920
  2. PROZAC [Concomitant]

REACTIONS (3)
  - DRY MOUTH [None]
  - DYSGEUSIA [None]
  - FATIGUE [None]
